FAERS Safety Report 7293422-5 (Version None)
Quarter: 2011Q1

REPORT INFORMATION
  Report Type: 
  Country: None (occurrence: None)
  Receive Date: 20110215
  Receipt Date: 20110203
  Transmission Date: 20110831
  Serious: Yes (Other)
  Sender: FDA-Public Use
  Company Number: BR-ELI_LILLY_AND_COMPANY-BR201012006307

PATIENT
  Sex: Female

DRUGS (3)
  1. METFORMIN [Concomitant]
     Dosage: 850 MG, 3/D
     Route: 065
  2. BYETTA [Suspect]
     Indication: DIABETES MELLITUS
     Dosage: 10 UG, 2/D
     Route: 058
     Dates: start: 20101212
  3. EUTIROX [Concomitant]
     Indication: THYROID DISORDER
     Dosage: 150 MG, UNKNOWN
     Route: 065

REACTIONS (2)
  - WEIGHT DECREASED [None]
  - BLOOD PRESSURE DECREASED [None]
